FAERS Safety Report 26091893 (Version 1)
Quarter: 2025Q4

REPORT INFORMATION
  Report Type: Spontaneous
  Country: CN (occurrence: CN)
  Receive Date: 20251126
  Receipt Date: 20251126
  Transmission Date: 20260118
  Serious: Yes (Life-Threatening, Other)
  Sender: STRIDES
  Company Number: CN-STRIDES ARCOLAB LIMITED-2025SP014619

PATIENT

DRUGS (6)
  1. PREDNISONE [Suspect]
     Active Substance: PREDNISONE
     Indication: Diffuse large B-cell lymphoma stage IV
     Dosage: 100 MILLIGRAM, AS A PART OF POLA-RCHP REGIMEN; FROM DAYS 2 TO 6; ADMINISTERED EVERY 21 DAYS FOR SIX
     Route: 048
  2. DOXORUBICIN [Suspect]
     Active Substance: DOXORUBICIN
     Indication: Diffuse large B-cell lymphoma stage IV
     Dosage: UNK, AS A PART OF POLA-RCHP REGIMEN; 50 MG/M ON DAY 2; ADMINISTERED EVERY 21 DAYS FOR SIX CYCLES
     Route: 042
  3. POLATUZUMAB VEDOTIN [Suspect]
     Active Substance: POLATUZUMAB VEDOTIN
     Indication: Diffuse large B-cell lymphoma stage IV
     Dosage: 1.8 MILLIGRAM/KILOGRAM, AS A PART OF POLA-RCHP REGIMEN; ON DAY 2; ADMINISTERED EVERY 21 DAYS FOR SIX
     Route: 042
  4. RITUXIMAB [Suspect]
     Active Substance: RITUXIMAB
     Indication: Diffuse large B-cell lymphoma stage IV
     Dosage: UNK, AS A PART OF POLA-RCHP REGIMEN; 375 MG/M ON DAY 1; ADMINISTERED EVERY 21 DAYS FOR SIX CYCLES
     Route: 042
  5. RITUXIMAB [Suspect]
     Active Substance: RITUXIMAB
     Dosage: UNK, TWO CYCLES OF RITUXIMAB MONOTHERAPY FOR MAINTENANCE
     Route: 042
  6. CYCLOPHOSPHAMIDE [Suspect]
     Active Substance: CYCLOPHOSPHAMIDE
     Indication: Diffuse large B-cell lymphoma stage IV
     Dosage: UNK, AS A PART OF POLA-RCHP REGIMEN; 750 MG/M ON DAY 2; ADMINISTERED EVERY 21 DAYS FOR SIX CYCLES
     Route: 042

REACTIONS (1)
  - Febrile neutropenia [Recovered/Resolved]
